FAERS Safety Report 9879839 (Version 2)
Quarter: 2014Q1

REPORT INFORMATION
  Report Type: Spontaneous
  Country: US (occurrence: US)
  Receive Date: 20140206
  Receipt Date: 20140206
  Transmission Date: 20141002
  Serious: Yes (Other)
  Sender: FDA-Public Use
  Company Number: US-GE HEALTHCARE MEDICAL DIAGNOSTICS-OSCN-PR-0905S-0246

PATIENT
  Age: 38 Year
  Sex: Male
  Weight: 99.77 kg

DRUGS (4)
  1. GADOLINIUM (UNSPECIFIED) [Suspect]
     Indication: PRODUCT USED FOR UNKNOWN INDICATION
     Dates: start: 20030101, end: 20030101
  2. MAGNEVIST [Suspect]
     Indication: PRODUCT USED FOR UNKNOWN INDICATION
     Route: 042
     Dates: start: 20021115, end: 20021115
  3. MAGNEVIST [Suspect]
     Indication: RENAL VEIN THROMBOSIS
     Route: 042
     Dates: start: 20021202, end: 20021202
  4. MAGNEVIST [Suspect]
     Indication: RENAL FAILURE CHRONIC
     Route: 042
     Dates: start: 20030619, end: 20030619

REACTIONS (1)
  - Nephrogenic systemic fibrosis [Not Recovered/Not Resolved]
